FAERS Safety Report 13683308 (Version 1)
Quarter: 2017Q2

REPORT INFORMATION
  Report Type: Spontaneous
  Country: US (occurrence: US)
  Receive Date: 20170623
  Receipt Date: 20170623
  Transmission Date: 20170830
  Serious: No
  Sender: FDA-Public Use
  Company Number: US-INTERPRAG-PM-OCA2017-00201

PATIENT

DRUGS (7)
  1. URSODIOL. [Concomitant]
     Active Substance: URSODIOL
  2. RANITIDINE. [Concomitant]
     Active Substance: RANITIDINE
  3. MOMETASONE [Concomitant]
     Active Substance: MOMETASONE
  4. HYDROXYZINE [Concomitant]
     Active Substance: HYDROXYZINE HYDROCHLORIDE
  5. OCALIVA [Suspect]
     Active Substance: OBETICHOLIC ACID
     Indication: RHEUMATOID ARTHRITIS
     Dosage: 5 MG, QD
     Route: 048
     Dates: start: 20170208
  6. MILK THISTLE                       /01131701/ [Concomitant]
  7. DOCUSATE [Concomitant]
     Active Substance: DOCUSATE

REACTIONS (4)
  - Product use issue [Not Recovered/Not Resolved]
  - Pruritus [Not Recovered/Not Resolved]
  - Dizziness [Not Recovered/Not Resolved]
  - Nausea [Not Recovered/Not Resolved]

NARRATIVE: CASE EVENT DATE: 20170210
